FAERS Safety Report 5406886-6 (Version None)
Quarter: 2007Q3

REPORT INFORMATION
  Report Type: 
  Country: None (occurrence: None)
  Receive Date: 20070802
  Receipt Date: 20070726
  Transmission Date: 20080115
  Serious: Yes (Life-Threatening, Hospitalization)
  Sender: FDA-Public Use
  Company Number: E2020-01398-SPO-JP

PATIENT
  Age: 78 Year
  Sex: Female
  Weight: 39 kg

DRUGS (16)
  1. ARICEPT [Suspect]
     Indication: DEMENTIA ALZHEIMER'S TYPE
     Dosage: 3 MG, 1 IN 1 D, ORAL; 5 MG, 1 IN 1 D, ORAL
     Route: 048
     Dates: start: 20070521, end: 20070607
  2. ARICEPT [Suspect]
     Indication: DEMENTIA ALZHEIMER'S TYPE
     Dosage: 3 MG, 1 IN 1 D, ORAL; 5 MG, 1 IN 1 D, ORAL
     Route: 048
     Dates: start: 20070608, end: 20070627
  3. RESLIN (TRAZODONE HYDROCHLORIDE) (TRAZODONE HYDROCHLORIDE) [Suspect]
     Dosage: 1 IN 1 D, ORAL
     Route: 048
     Dates: start: 20070611, end: 20070627
  4. HIBERNA (PROMETHAZINE HYDROCHLORIDE) (PROMETHAZINE HYDROCHLORIDE) [Suspect]
     Dosage: 1 IN 1 D, ORAL
     Route: 048
     Dates: start: 20070530, end: 20070627
  5. TETRAMIDE (MIANSERIN HYDROCHLORIDE) (MIANSERIN HYDROCHLORIDE) [Concomitant]
  6. BUFFERIN (ASPIRIN/ALBUMINUM GLYCINATE/MAGNESIUM CARBONATE) (BUFFERIN) [Concomitant]
  7. PREDONINE (PREDNISOLONE) (PREDNISOLONE) [Concomitant]
  8. GASLON N (IRSOGLADINE MALEATE) (IRSOGLADINE MALEATE) [Concomitant]
  9. BONALON (ALENDRONATE SODIUM HYDRATE) (ALENDRONATE SODIUM) [Concomitant]
  10. THYRADIN S (DRIED THYROID) (LEVOTHYROXINE SODIUM) [Concomitant]
  11. ALFAROL (ALFACALCIDOL) (ALFACALCIDOL) [Concomitant]
  12. GASMOTIN (MOSAPRIDE CITRATE) (MOSAPRIDE CITRATE) [Concomitant]
  13. HALCION [Concomitant]
  14. RISPERDAL [Concomitant]
  15. EURODIN (ESTAZOLAM) (ESTAZOLAM) [Concomitant]
  16. DEPAKENE R (SODIUM VALPROATE) (VALPROATE SODIUM) [Concomitant]

REACTIONS (10)
  - ALTERED STATE OF CONSCIOUSNESS [None]
  - CLONIC CONVULSION [None]
  - DEHYDRATION [None]
  - DELIRIUM [None]
  - GAZE PALSY [None]
  - MEMORY IMPAIRMENT [None]
  - MUSCULOSKELETAL STIFFNESS [None]
  - RESPIRATORY ARREST [None]
  - RESPIRATORY DISORDER [None]
  - STATUS EPILEPTICUS [None]
